FAERS Safety Report 6436315-5 (Version None)
Quarter: 2009Q4

REPORT INFORMATION
  Report Type: 
  Country: None (occurrence: None)
  Receive Date: 20091111
  Receipt Date: 20091104
  Transmission Date: 20100525
  Serious: Yes (Life-Threatening)
  Sender: FDA-Public Use
  Company Number: B0601678A

PATIENT
  Age: 58 Year
  Sex: Male
  Weight: 138 kg

DRUGS (15)
  1. ARIXTRA [Suspect]
     Indication: DEEP VEIN THROMBOSIS
     Dosage: 10MG PER DAY
     Route: 058
     Dates: start: 20090824, end: 20090829
  2. PREVISCAN [Suspect]
     Indication: DEEP VEIN THROMBOSIS
     Dosage: 1UNIT PER DAY
     Route: 048
     Dates: start: 20090825, end: 20090829
  3. CLAMOXYL [Concomitant]
     Indication: ERYSIPELAS
     Route: 048
     Dates: start: 20090810
  4. AUGMENTIN '125' [Concomitant]
     Indication: ERYSIPELAS
     Dosage: 2G THREE TIMES PER DAY
     Route: 048
     Dates: start: 20090825, end: 20090831
  5. LASILIX FAIBLE 20 MG [Concomitant]
     Indication: DRUG USE FOR UNKNOWN INDICATION
     Dosage: 20MG PER DAY
     Route: 048
     Dates: start: 20090817
  6. DOLIPRANE [Concomitant]
     Indication: DRUG USE FOR UNKNOWN INDICATION
     Dosage: 1G FOUR TIMES PER DAY
     Route: 048
     Dates: start: 20090801
  7. PIPERACILLIN + TAZOBACTAM [Concomitant]
     Indication: DRUG USE FOR UNKNOWN INDICATION
     Dosage: 12G PER DAY
     Route: 042
     Dates: start: 20090819, end: 20090825
  8. CONTRAMAL [Concomitant]
     Indication: PAIN
     Dosage: 50MG FOUR TIMES PER DAY
     Route: 048
     Dates: start: 20090817
  9. COVERSYL [Concomitant]
     Indication: DRUG USE FOR UNKNOWN INDICATION
     Route: 065
  10. PRAVASTATIN [Concomitant]
     Indication: DRUG USE FOR UNKNOWN INDICATION
     Route: 065
  11. ZANIDIP [Concomitant]
     Indication: DRUG USE FOR UNKNOWN INDICATION
     Route: 065
  12. IDARAC [Concomitant]
     Indication: DRUG USE FOR UNKNOWN INDICATION
     Route: 065
  13. ALLOPURINOL [Concomitant]
     Indication: DRUG USE FOR UNKNOWN INDICATION
     Route: 065
  14. VITAMIN B COMPLEX CAP [Concomitant]
     Indication: DRUG USE FOR UNKNOWN INDICATION
     Route: 065
  15. NICOBION [Concomitant]
     Indication: DRUG USE FOR UNKNOWN INDICATION
     Route: 065

REACTIONS (6)
  - ANAEMIA [None]
  - CONJUNCTIVAL PALLOR [None]
  - DRUG INTERACTION [None]
  - GASTRIC ULCER HAEMORRHAGE [None]
  - MELAENA [None]
  - VERTIGO POSITIONAL [None]
